FAERS Safety Report 10960548 (Version 1)
Quarter: 2015Q1

REPORT INFORMATION
  Report Type: Spontaneous
  Country: IT (occurrence: IT)
  Receive Date: 20150327
  Receipt Date: 20150327
  Transmission Date: 20150721
  Serious: Yes (Other)
  Sender: FDA-Public Use
  Company Number: IT-CELGENE-ITA-2015035124

PATIENT
  Age: 57 Year
  Sex: Male

DRUGS (1)
  1. VIDAZA [Suspect]
     Active Substance: AZACITIDINE
     Indication: CHRONIC MYELOMONOCYTIC LEUKAEMIA
     Dosage: 75 MILLIGRAM/SQ. METER
     Route: 065

REACTIONS (6)
  - Colitis [Unknown]
  - Urinary tract infection bacterial [Unknown]
  - Condition aggravated [Unknown]
  - Candida infection [None]
  - Cachexia [Unknown]
  - Wernicke^s encephalopathy [Unknown]
